FAERS Safety Report 18069691 (Version 1)
Quarter: 2020Q3

REPORT INFORMATION
  Report Type: Spontaneous
  Country: US (occurrence: US)
  Receive Date: 20200726
  Receipt Date: 20200726
  Transmission Date: 20201103
  Serious: No
  Sender: FDA-Public Use
  Company Number: US-TEVA-2020-US-1805527

PATIENT
  Age: 57 Year
  Sex: Female
  Weight: 65.77 kg

DRUGS (2)
  1. PREGABALIN TEVA [Suspect]
     Active Substance: PREGABALIN
     Indication: FIBROMYALGIA
     Route: 048
     Dates: start: 20200625
  2. PREGABALIN TEVA [Suspect]
     Active Substance: PREGABALIN
     Route: 065
     Dates: start: 202005

REACTIONS (2)
  - Urine odour abnormal [Not Recovered/Not Resolved]
  - Breast tenderness [Not Recovered/Not Resolved]
